FAERS Safety Report 9007301 (Version 1)
Quarter: 2013Q1

REPORT INFORMATION
  Report Type: Spontaneous
  Country: NO (occurrence: NO)
  Receive Date: 20130110
  Receipt Date: 20130110
  Transmission Date: 20140127
  Serious: Yes (Disabling)
  Sender: FDA-Public Use
  Company Number: NO-GILEAD-2013-0067628

PATIENT
  Age: 50 Year
  Sex: Male

DRUGS (3)
  1. VIREAD [Suspect]
     Indication: PRODUCT USED FOR UNKNOWN INDICATION
     Dates: start: 20100423
  2. RAPAMUNE [Suspect]
     Indication: LIVER TRANSPLANT
     Dosage: 2 MG, QOD
     Dates: start: 20111211
  3. RAPAMUNE [Suspect]
     Dosage: 1 MG, QOD
     Dates: start: 20111211

REACTIONS (6)
  - Arthralgia [Not Recovered/Not Resolved]
  - Arthralgia [Not Recovered/Not Resolved]
  - Pain in extremity [Not Recovered/Not Resolved]
  - Pain in extremity [Not Recovered/Not Resolved]
  - Pain in extremity [Not Recovered/Not Resolved]
  - Pain in extremity [Not Recovered/Not Resolved]
